FAERS Safety Report 7707037-5 (Version None)
Quarter: 2011Q3

REPORT INFORMATION
  Report Type: 
  Country: None (occurrence: None)
  Receive Date: 20110824
  Receipt Date: 20110818
  Transmission Date: 20111222
  Serious: No
  Sender: FDA-Public Use
  Company Number: US-PFIZER INC-2011191725

PATIENT
  Sex: Female

DRUGS (2)
  1. TRIAZOLAM [Suspect]
     Indication: SEDATIVE THERAPY
     Dosage: 0.125 MG, 3X/DAY
     Route: 048
     Dates: start: 20110816, end: 20110816
  2. HYDROXYCHLOROQUINE [Concomitant]
     Dosage: UNK

REACTIONS (2)
  - DRUG SCREEN NEGATIVE [None]
  - DRUG INEFFECTIVE [None]
